FAERS Safety Report 4660989-2 (Version None)
Quarter: 2005Q2

REPORT INFORMATION
  Report Type: 
  Country: None (occurrence: None)
  Receive Date: 20050511
  Receipt Date: 20050502
  Transmission Date: 20051028
  Serious: Yes (Hospitalization, Other)
  Sender: FDA-Public Use
  Company Number: 2005050275

PATIENT
  Age: 72 Year
  Sex: Male
  Weight: 89.8122 kg

DRUGS (15)
  1. CELEBREX [Suspect]
     Indication: ARTHRITIS
     Dosage: ORAL
     Route: 048
  2. BEXTRA [Suspect]
     Indication: ARTHRALGIA
     Dates: end: 20050123
  3. ASPIRIN [Suspect]
     Indication: ANALGESIC INTERVENTION SUPPORTIVE THERAPY
     Dosage: ORAL
     Route: 048
     Dates: start: 19990101, end: 20050101
  4. ROFECOXIB [Suspect]
     Indication: ARTHRITIS
     Dosage: ORAL
     Route: 048
     Dates: end: 20050123
  5. ROSIGLITAZONE MALEATE [Concomitant]
  6. ATORVASTATIN CALCIUM [Concomitant]
  7. MULTIVITAMINS (ASCORBIC ACID/ERGOCALCIFEROL/FOLIC ACID/NICOTINAMIDE/PA [Concomitant]
  8. FLUCONAZOLE [Concomitant]
  9. RAMIPRIL [Concomitant]
  10. BACTRIM [Concomitant]
  11. TRAZODONE HCL [Concomitant]
  12. ACETAMINOPHEN [Concomitant]
  13. VARDENAFIL (VARDENAFIL) [Concomitant]
  14. ATENOLOL [Concomitant]
  15. TOCOPHEROL (TOCOPHEROL) [Concomitant]

REACTIONS (17)
  - ATRIOVENTRICULAR BLOCK FIRST DEGREE [None]
  - AZOTAEMIA [None]
  - BENIGN PROSTATIC HYPERPLASIA [None]
  - BLOOD PRESSURE DIASTOLIC DECREASED [None]
  - BLOOD UREA INCREASED [None]
  - CHEST PAIN [None]
  - DIZZINESS [None]
  - EPIGASTRIC DISCOMFORT [None]
  - FAECAL OCCULT BLOOD POSITIVE [None]
  - FAECES DISCOLOURED [None]
  - FEELING HOT [None]
  - GASTRIC ULCER [None]
  - GASTROINTESTINAL ULCER HAEMORRHAGE [None]
  - HEADACHE [None]
  - HELICOBACTER PYLORI IDENTIFICATION TEST POSITIVE [None]
  - HYPERHIDROSIS [None]
  - WHITE BLOOD CELL COUNT DECREASED [None]
